FAERS Safety Report 5438875-X (Version None)
Quarter: 2007Q3

REPORT INFORMATION
  Report Type: 
  Country: None (occurrence: None)
  Receive Date: 20070831
  Receipt Date: 20070824
  Transmission Date: 20080115
  Serious: Yes (Hospitalization, Disabling)
  Sender: FDA-Public Use
  Company Number: US-JNJFOC-20060701854

PATIENT
  Sex: Female
  Weight: 48.17 kg

DRUGS (1)
  1. ORTHO EVRA [Suspect]
     Indication: DRUG USE FOR UNKNOWN INDICATION
     Route: 062

REACTIONS (18)
  - ANXIETY [None]
  - CATHETER SEPSIS [None]
  - CEREBELLAR HAEMANGIOMA [None]
  - CEREBRAL ISCHAEMIA [None]
  - DEEP VEIN THROMBOSIS [None]
  - DRUG INEFFECTIVE [None]
  - HEART RATE INCREASED [None]
  - HYDROCEPHALUS [None]
  - INTRAVENTRICULAR HAEMORRHAGE [None]
  - LARYNGEAL DISORDER [None]
  - LEUKOPENIA [None]
  - LOBAR PNEUMONIA [None]
  - ORTHOSTATIC HYPOTENSION [None]
  - PANCREATITIS [None]
  - STAPHYLOCOCCAL INFECTION [None]
  - TRACHEOBRONCHITIS [None]
  - URINARY TRACT INFECTION [None]
  - VIRAL INFECTION [None]
